FAERS Safety Report 24113678 (Version 1)
Quarter: 2024Q3

REPORT INFORMATION
  Report Type: Spontaneous
  Country: NL (occurrence: NL)
  Receive Date: 20240720
  Receipt Date: 20240720
  Transmission Date: 20241017
  Serious: Yes (Disabling)
  Sender: AUROBINDO
  Company Number: NL-LRB-00982768

PATIENT
  Age: 47 Year
  Sex: Female
  Weight: 60 kg

DRUGS (2)
  1. LAMOTRIGINE [Suspect]
     Active Substance: LAMOTRIGINE
     Indication: Partial seizures
     Dosage: 150 MILLIGRAM, TWO TIMES A DAY (3 PIECES)
     Route: 065
     Dates: start: 20231015, end: 20240329
  2. LEVETIRACETAM [Concomitant]
     Active Substance: LEVETIRACETAM
     Indication: Product used for unknown indication
     Dosage: 1000 MILLIGRAM
     Route: 065

REACTIONS (3)
  - Aphasia [Recovering/Resolving]
  - Myoclonus [Recovering/Resolving]
  - Increased need for sleep [Recovered/Resolved]
